FAERS Safety Report 21092603 (Version 1)
Quarter: 2022Q3

REPORT INFORMATION
  Report Type: Spontaneous
  Country: IL (occurrence: IL)
  Receive Date: 20220718
  Receipt Date: 20220718
  Transmission Date: 20221027
  Serious: Yes (Other)
  Sender: FDA-Public Use
  Company Number: IL-NOVARTISPH-NVSC2022IL160353

PATIENT
  Sex: Male

DRUGS (1)
  1. BEOVU [Suspect]
     Active Substance: BROLUCIZUMAB-DBLL
     Indication: Neovascular age-related macular degeneration
     Dosage: 6 MG, 2 INJECTIONS AND BETWEEN THEM 6 WEEKS INTERVAL
     Route: 065

REACTIONS (6)
  - Neovascular age-related macular degeneration [Unknown]
  - Disease progression [Unknown]
  - Eye haemorrhage [Unknown]
  - Blindness [Unknown]
  - Visual acuity reduced [Unknown]
  - Off label use [Unknown]
